FAERS Safety Report 9519499 (Version 3)
Quarter: 2013Q4

REPORT INFORMATION
  Report Type: Spontaneous
  Country: US (occurrence: US)
  Receive Date: 20130912
  Receipt Date: 20131014
  Transmission Date: 20140711
  Serious: Yes (Death, Hospitalization, Other)
  Sender: FDA-Public Use
  Company Number: US-PFIZER INC-2013245753

PATIENT
  Age: 78 Year
  Sex: Male
  Weight: 108 kg

DRUGS (1)
  1. DEPO-MEDROL [Suspect]
     Indication: BACK PAIN
     Dosage: 80 MG/ML 1ML VIAL X 25
     Route: 008
     Dates: start: 20130701

REACTIONS (7)
  - Off label use [Unknown]
  - Death [Fatal]
  - Meningitis bacterial [Unknown]
  - Subcutaneous abscess [Unknown]
  - Pulmonary embolism [Unknown]
  - Pyrexia [Unknown]
  - Back pain [Unknown]
